FAERS Safety Report 7658554-8 (Version None)
Quarter: 2011Q3

REPORT INFORMATION
  Report Type: 
  Country: None (occurrence: None)
  Receive Date: 20110804
  Receipt Date: 20110804
  Transmission Date: 20111222
  Serious: No
  Sender: FDA-Public Use
  Company Number: None

PATIENT
  Sex: Female

DRUGS (2)
  1. XELODA [Suspect]
     Indication: METASTASES TO BONE
     Dosage: 2000 MG BID PO
     Route: 048
     Dates: start: 20110426
  2. XELODA [Suspect]
     Indication: BREAST CANCER
     Dosage: 2000 MG BID PO
     Route: 048
     Dates: start: 20110426

REACTIONS (1)
  - PAIN IN EXTREMITY [None]
